FAERS Safety Report 6386281 (Version 26)
Quarter: 2014Q1

REPORT INFORMATION
  Report Type: Spontaneous
  Country: US (occurrence: US)
  Receive Date: 20070820
  Receipt Date: 20140106
  Transmission Date: 20141002
  Serious: Yes (Death, Hospitalization, Other)
  Sender: FDA-Public Use
  Company Number: PHEH2007US11162

PATIENT
  Age: 63 Year
  Sex: Female
  Weight: 58.95 kg

DRUGS (36)
  1. ZOMETA [Suspect]
     Indication: METASTASES TO BONE
     Dosage: 4 MG, QW3
     Route: 041
     Dates: start: 20040310
  2. ZOMETA [Suspect]
     Indication: BREAST CANCER
  3. ZOMETA [Suspect]
     Indication: OSTEOPOROSIS PROPHYLAXIS
  4. AREDIA [Suspect]
     Dosage: 90 MG,
     Route: 042
  5. FOSAMAX [Suspect]
     Dosage: 70 MG, UNK
     Dates: start: 2004
  6. BEXTRA [Concomitant]
     Dosage: 20 MG, UNK
     Dates: start: 2004
  7. CELEBREX [Concomitant]
     Dosage: 100 MG, UNK
     Dates: start: 2004
  8. NEURONTIN [Concomitant]
     Dosage: 300 MG, UNK
     Dates: start: 2004
  9. PROTONIX ^WYETH-AYERST^ [Concomitant]
     Dosage: 40 MG, UNK
     Dates: start: 2004
  10. DEXAMETHASONE [Concomitant]
     Dosage: 4 MG, UNK
     Dates: start: 2004
  11. PROVIGIL [Concomitant]
     Dosage: 100 MG, UNK
     Dates: start: 2004
  12. BIAXIN [Concomitant]
     Dosage: 250 MG, UNK
     Dates: start: 2004
  13. LEVAQUIN [Concomitant]
     Dosage: 500 MG, UNK
     Dates: start: 2004
  14. CLINDAMYCIN [Concomitant]
     Dosage: 300 MG, UNK
     Dates: start: 2005
  15. WARFARIN [Concomitant]
     Dosage: 1 MG, UNK
     Dates: start: 2005
  16. MORPHINE SULFATE [Concomitant]
     Dosage: 100 MG, UNK
     Dates: start: 2005
  17. HYDROMORPHONE [Concomitant]
     Dosage: 4 MG, UNK
     Dates: start: 2006
  18. PREVACID [Concomitant]
     Dosage: 30 MG, UNK
     Dates: start: 2006
  19. NEXIUM [Concomitant]
     Dosage: 40 MG, UNK
     Dates: start: 2007
  20. OXYCONTIN [Concomitant]
  21. MS CONTIN [Concomitant]
  22. TAXOTERE [Concomitant]
  23. CARBOPLATIN [Concomitant]
  24. PROCRIT                            /00909301/ [Concomitant]
     Route: 065
  25. FASLODEX [Concomitant]
  26. LIDODERM [Concomitant]
     Route: 062
  27. LASIX [Concomitant]
  28. DILAUDID [Concomitant]
  29. KCL [Concomitant]
  30. FEOSOL [Concomitant]
     Indication: MINERAL SUPPLEMENTATION
  31. FEMARA [Concomitant]
     Indication: BREAST CANCER
  32. MEGACE [Concomitant]
  33. METOPROLOL [Concomitant]
     Dosage: 25 MG, Q12H
  34. ETHAMBUTOL [Concomitant]
     Dosage: 400 MG, BID
  35. ISONIAZID [Concomitant]
  36. PYRAZINAMIDE [Concomitant]

REACTIONS (125)
  - Death [Fatal]
  - Mental status changes [Unknown]
  - Breast cancer stage IV [Unknown]
  - Malaise [Unknown]
  - Osteonecrosis of jaw [Unknown]
  - Physical disability [Unknown]
  - Pain [Unknown]
  - Bone disorder [Unknown]
  - Emotional distress [Unknown]
  - Decreased interest [Unknown]
  - Oral cavity fistula [Unknown]
  - Oedema mucosal [Unknown]
  - Lip and/or oral cavity cancer [Unknown]
  - Gingival ulceration [Unknown]
  - Multiple injuries [Unknown]
  - Oral discharge [Unknown]
  - Disability [Unknown]
  - Metastases to bone [Unknown]
  - Malignant neoplasm progression [Unknown]
  - Compression fracture [Unknown]
  - Metastatic pain [Unknown]
  - Fall [Unknown]
  - Anaemia of malignant disease [Unknown]
  - Iron deficiency anaemia [Unknown]
  - Thrombocytosis [Unknown]
  - Deep vein thrombosis [Unknown]
  - Haemorrhage [Unknown]
  - Fracture [Unknown]
  - Bone neoplasm [Unknown]
  - Intervertebral disc degeneration [Unknown]
  - Intervertebral disc protrusion [Unknown]
  - Cervical spinal stenosis [Unknown]
  - Cervical cord compression [Unknown]
  - Haemorrhoids [Unknown]
  - Cardiomegaly [Unknown]
  - Pleural effusion [Unknown]
  - Nasal septum deviation [Unknown]
  - Chronic obstructive pulmonary disease [Unknown]
  - Arthritis [Unknown]
  - Kyphoscoliosis [Unknown]
  - Hypertension [Unknown]
  - Lethargy [Unknown]
  - Dyspnoea [Unknown]
  - Bone pain [Unknown]
  - Musculoskeletal pain [Unknown]
  - Leukopenia [Unknown]
  - Asthenia [Unknown]
  - Sinusitis [Unknown]
  - Rhinorrhoea [Unknown]
  - Cardiac failure congestive [Unknown]
  - Local swelling [Unknown]
  - Lymphadenopathy [Unknown]
  - Diverticulum [Unknown]
  - Constipation [Unknown]
  - Abdominal pain [Unknown]
  - Hyperkalaemia [Unknown]
  - Sepsis [Unknown]
  - Back pain [Not Recovered/Not Resolved]
  - Myalgia [Unknown]
  - Metastases to lung [Unknown]
  - Syncope [Unknown]
  - Acute prerenal failure [Unknown]
  - Renal failure [Unknown]
  - Pulmonary tuberculosis [Unknown]
  - Confusional state [Unknown]
  - Thrombocytopenia [Unknown]
  - Dehydration [Unknown]
  - Psoriasis [Unknown]
  - Hypokalaemia [Unknown]
  - Hypercalcaemia [Unknown]
  - Nausea [Unknown]
  - Pathological fracture [Unknown]
  - Psychotic disorder [Unknown]
  - Dementia [Unknown]
  - Joint swelling [Unknown]
  - Osteolysis [Unknown]
  - Rib fracture [Recovering/Resolving]
  - Atelectasis [Unknown]
  - Kyphosis [Unknown]
  - Pulmonary artery thrombosis [Unknown]
  - Adrenal mass [Unknown]
  - Cerebral calcification [Unknown]
  - Fibrosis [Unknown]
  - Interstitial lung disease [Unknown]
  - Foot deformity [Unknown]
  - Spinal osteoarthritis [Unknown]
  - Intervertebral disc space narrowing [Unknown]
  - Pulmonary fibrosis [Unknown]
  - Aortic calcification [Unknown]
  - Lordosis [Unknown]
  - Hypoaesthesia [Not Recovered/Not Resolved]
  - Patella fracture [Unknown]
  - Hypertrophy [Unknown]
  - Metastases to spine [Unknown]
  - Tenosynovitis stenosans [Unknown]
  - Lower limb fracture [Unknown]
  - Ectopic pregnancy [Unknown]
  - Paraesthesia [Unknown]
  - Osteopenia [Unknown]
  - Aortic arteriosclerosis [Unknown]
  - Device related infection [Unknown]
  - Vertebral foraminal stenosis [Unknown]
  - Malnutrition [Unknown]
  - Urinary tract infection [Unknown]
  - Gait disturbance [Unknown]
  - Depression [Unknown]
  - Humerus fracture [Unknown]
  - Skin disorder [Unknown]
  - Lung infiltration [Unknown]
  - Muscle atrophy [Unknown]
  - Sciatica [Unknown]
  - Metastatic lymphoma [Unknown]
  - Metastases to central nervous system [Unknown]
  - Faecal incontinence [Unknown]
  - Rib deformity [Unknown]
  - Pulmonary embolism [Unknown]
  - Arthralgia [Unknown]
  - Sinus tachycardia [Unknown]
  - Nasal congestion [Unknown]
  - Mass [Unknown]
  - Adrenal disorder [Unknown]
  - Purulent discharge [Unknown]
  - Soft tissue injury [Unknown]
  - Exostosis [Unknown]
  - Osteoarthritis [Unknown]
